FAERS Safety Report 5702812-0 (Version None)
Quarter: 2008Q2

REPORT INFORMATION
  Report Type: 
  Country: None (occurrence: None)
  Receive Date: 20080411
  Receipt Date: 20080401
  Transmission Date: 20081010
  Serious: Yes (Other)
  Sender: FDA-Public Use
  Company Number: RU-ELI_LILLY_AND_COMPANY-RU200803000725

PATIENT
  Age: 45 Year
  Sex: Female

DRUGS (6)
  1. BYETTA [Suspect]
     Dosage: 5 UG, 2/D
     Route: 058
     Dates: start: 20080101, end: 20080201
  2. BYETTA [Suspect]
     Dosage: 10 UG, 2/D
     Route: 058
     Dates: start: 20080201
  3. BYETTA [Suspect]
     Dosage: 5 UG, 2/D
     Route: 058
  4. SIOFOR [Concomitant]
     Dosage: 850 MG, EACH EVENING
     Route: 048
  5. SIOFOR [Concomitant]
     Dosage: 1000 MG, EACH EVENING
     Route: 048
  6. GLIBOMET [Concomitant]
     Dosage: 2 D/F, 2/D
     Route: 048

REACTIONS (5)
  - BLOOD GLUCOSE DECREASED [None]
  - HYPOGLYCAEMIA [None]
  - LOSS OF CONSCIOUSNESS [None]
  - NAUSEA [None]
  - VOMITING [None]
